FAERS Safety Report 15311698 (Version 2)
Quarter: 2018Q4

REPORT INFORMATION
  Report Type: Spontaneous
  Country: CA (occurrence: CA)
  Receive Date: 20180823
  Receipt Date: 20181011
  Transmission Date: 20190204
  Serious: Yes (Other)
  Sender: FDA-Public Use
  Company Number: CA-PFIZER INC-2018326867

PATIENT
  Age: 54 Year
  Sex: Female

DRUGS (5)
  1. XELJANZ [Suspect]
     Active Substance: TOFACITINIB CITRATE
     Indication: RHEUMATOID ARTHRITIS
     Dosage: 5 MG, BID (2X/DAY)
     Route: 048
     Dates: start: 20150109
  2. LYRICA [Concomitant]
     Active Substance: PREGABALIN
     Dosage: UNK
     Route: 048
  3. CELEBREX [Concomitant]
     Active Substance: CELECOXIB
     Dosage: 400 MG, UNK
     Route: 048
  4. XELJANZ [Suspect]
     Active Substance: TOFACITINIB CITRATE
     Dosage: 5 MG,  BID (2X/DAY)
     Route: 048
     Dates: start: 20180802
  5. METHOTREXATE. [Concomitant]
     Active Substance: METHOTREXATE
     Indication: RHEUMATOID ARTHRITIS
     Dosage: UNK
     Route: 065

REACTIONS (5)
  - Nausea [Unknown]
  - Condition aggravated [Unknown]
  - Drug ineffective [Unknown]
  - Contusion [Unknown]
  - Rheumatoid arthritis [Unknown]
